FAERS Safety Report 7865315-3 (Version None)
Quarter: 2011Q4

REPORT INFORMATION
  Report Type: 
  Country: None (occurrence: None)
  Receive Date: 20111028
  Receipt Date: 20111018
  Transmission Date: 20120403
  Serious: Yes (Other)
  Sender: FDA-Public Use
  Company Number: US-JNJFOC-20111007662

PATIENT
  Sex: Female
  Weight: 59.88 kg

DRUGS (8)
  1. METHOTREXATE [Concomitant]
     Indication: ARTHRITIS
     Route: 048
     Dates: start: 20040101
  2. REMICADE [Suspect]
     Indication: RHEUMATOID ARTHRITIS
     Dosage: TITRATION OF THE DOSAGE MULTIPLE TIMES
     Route: 042
     Dates: start: 20060801
  3. FOLIC ACID [Concomitant]
     Indication: ARTHRITIS
     Route: 048
     Dates: start: 20040101
  4. CLONAZEPAM [Concomitant]
     Indication: INSOMNIA
     Route: 048
  5. HYDROCODONE BITARTRATE [Concomitant]
     Indication: PAIN
  6. LEXAPRO [Concomitant]
     Indication: DEPRESSION
     Route: 048
     Dates: start: 20040101
  7. MELOXICAM [Concomitant]
     Indication: ANTIINFLAMMATORY THERAPY
     Route: 048
     Dates: start: 20060101
  8. BENADRYL [Concomitant]

REACTIONS (10)
  - HEADACHE [None]
  - NAUSEA [None]
  - DRUG INEFFECTIVE [None]
  - ARTHRALGIA [None]
  - INFUSION RELATED REACTION [None]
  - LYMPHADENOPATHY [None]
  - ARTHROPATHY [None]
  - WEIGHT INCREASED [None]
  - MOVEMENT DISORDER [None]
  - CHILLS [None]
